FAERS Safety Report 11378929 (Version 1)
Quarter: 2015Q3

REPORT INFORMATION
  Report Type: Spontaneous
  Country: US (occurrence: None)
  Receive Date: 20150812
  Receipt Date: 20150812
  Transmission Date: 20151125
  Serious: Yes (Hospitalization)
  Sender: FDA-Public Use
  Company Number: None

PATIENT
  Age: 70 Year
  Sex: Male
  Weight: 80.1 kg

DRUGS (4)
  1. IODIXANOL [Suspect]
     Active Substance: IODIXANOL
     Indication: SCAN WITH CONTRAST
     Route: 042
     Dates: start: 20150712, end: 20150712
  2. IODIXANOL [Suspect]
     Active Substance: IODIXANOL
     Indication: PAIN
     Route: 042
     Dates: start: 20150712, end: 20150712
  3. LISINOPRIL. [Suspect]
     Active Substance: LISINOPRIL
     Indication: HYPERTENSION
     Route: 048
     Dates: start: 20000220, end: 20150712
  4. IODIXANOL [Suspect]
     Active Substance: IODIXANOL
     Indication: ABDOMINAL PAIN
     Route: 042
     Dates: start: 20150712, end: 20150712

REACTIONS (5)
  - Pruritus [None]
  - Swelling face [None]
  - Local swelling [None]
  - Angioedema [None]
  - Urticaria [None]

NARRATIVE: CASE EVENT DATE: 20150712
